FAERS Safety Report 5193568-1 (Version None)
Quarter: 2006Q4

REPORT INFORMATION
  Report Type: 
  Country: None (occurrence: None)
  Receive Date: 20061228
  Receipt Date: 20060824
  Transmission Date: 20070319
  Serious: No
  Sender: FDA-Public Use
  Company Number: 300 48 0438

PATIENT
  Age: 52 Year
  Sex: Male
  Weight: 87.3 kg

DRUGS (6)
  1. FLUTICASONE PROPIONATE [Suspect]
     Dosage: 2SPR PER DAY
     Route: 045
     Dates: start: 20060808, end: 20060811
  2. CLARINEX [Concomitant]
  3. LIPITOR [Concomitant]
  4. COZAAR [Concomitant]
  5. LISINOPRIL [Concomitant]
  6. LEVOTHYROXINE SODIUM [Concomitant]

REACTIONS (1)
  - AGEUSIA [None]
